FAERS Safety Report 9049748 (Version 1)
Quarter: 2013Q1

REPORT INFORMATION
  Report Type: Spontaneous
  Country: BR (occurrence: BR)
  Receive Date: 20130205
  Receipt Date: 20130205
  Transmission Date: 20140127
  Serious: Yes (Hospitalization)
  Sender: FDA-Public Use
  Company Number: BR-PFIZER INC-2013031872

PATIENT
  Age: 19 Month
  Sex: Female

DRUGS (4)
  1. CEFEPIME HCL [Suspect]
     Indication: PYREXIA
     Dosage: UNK
     Route: 065
  2. VANCOMYCIN [Suspect]
     Indication: PYREXIA
     Dosage: UNK
     Route: 065
  3. MEROPENEM [Suspect]
     Indication: STAPHYLOCOCCUS TEST POSITIVE
     Dosage: UNK
     Route: 065
  4. AMPHOTERICIN B [Suspect]
     Indication: STAPHYLOCOCCUS TEST POSITIVE
     Dosage: UNK
     Route: 065

REACTIONS (5)
  - Candida infection [Recovered/Resolved]
  - Staphylococcal infection [Unknown]
  - Pleural effusion [Recovered/Resolved]
  - Sepsis [Recovered/Resolved]
  - Necrosis [Recovered/Resolved]
